FAERS Safety Report 15727448 (Version 2)
Quarter: 2022Q1

REPORT INFORMATION
  Report Type: Spontaneous
  Country: ES (occurrence: ES)
  Receive Date: 20181217
  Receipt Date: 20220222
  Transmission Date: 20220423
  Serious: Yes (Other)
  Sender: FDA-Public Use
  Company Number: ES-AUROBINDO-AUR-APL-2018-003520

PATIENT
  Age: 74 Year
  Sex: Male

DRUGS (1)
  1. CAPECITABINE [Suspect]
     Active Substance: CAPECITABINE
     Indication: Adenocarcinoma of colon
     Dosage: 2 GRAM, TWO TIMES A DAY
     Route: 048

REACTIONS (4)
  - Actinic keratosis [Unknown]
  - Pruritus [Unknown]
  - Rash erythematous [Unknown]
  - Condition aggravated [Unknown]
